FAERS Safety Report 12661627 (Version 3)
Quarter: 2016Q3

REPORT INFORMATION
  Report Type: Spontaneous
  Country: US (occurrence: US)
  Receive Date: 20160817
  Receipt Date: 20160912
  Transmission Date: 20161109
  Serious: No
  Sender: FDA-Public Use
  Company Number: US-PFIZER INC-2016389235

PATIENT
  Age: 73 Year
  Sex: Female

DRUGS (28)
  1. FLUTICASONE [Concomitant]
     Active Substance: FLUTICASONE\FLUTICASONE PROPIONATE
     Dosage: UNK UNK, DAILY (50MCG/ACT; 2 SPRAY DAILY)
     Route: 045
  2. PROAIR HFA [Concomitant]
     Active Substance: ALBUTEROL SULFATE
     Dosage: UNK UNK, AS NEEDED (90MGC/ACT; 2 PUFFS INH Q4H PRN)
     Route: 055
  3. PRILOSEC [Concomitant]
     Active Substance: OMEPRAZOLE MAGNESIUM
     Dosage: 40 MG, 2X/DAY (1 CAPSULE BID)
     Route: 048
  4. NEURONTIN [Concomitant]
     Active Substance: GABAPENTIN
     Dosage: 600 MG, 4X/DAY
     Route: 048
  5. SYMBICORT [Concomitant]
     Active Substance: BUDESONIDE\FORMOTEROL FUMARATE DIHYDRATE
     Dosage: UNK, 2X/DAY (2 PUFFS INH BID; [BUDESONIDE: 80MCG/ACT]/[FORMOTEROL FUMARATE: 4.5 MCG/ACT])
     Route: 055
  6. JANUVIA [Concomitant]
     Active Substance: SITAGLIPTIN PHOSPHATE
     Dosage: 100 MG, DAILY
     Route: 048
  7. SINGULAIR [Concomitant]
     Active Substance: MONTELUKAST SODIUM
     Dosage: 10 MG, UNK
  8. ZYRTEC [Concomitant]
     Active Substance: CETIRIZINE HYDROCHLORIDE
     Dosage: 10 MG, DAILY
     Route: 048
  9. OMEGA 3 FISH OILS [Concomitant]
     Active Substance: OMEGA-3 FATTY ACIDS
     Dosage: UNK, DAILY (684 MG- 1200 MG )
     Route: 048
  10. LOSARTAN AND HYDROCHLOROTHIAZIDE [Concomitant]
     Active Substance: HYDROCHLOROTHIAZIDE\LOSARTAN POTASSIUM
     Dosage: UNK UNK, 2X/DAY (1/2 TABLET BID; [HYDROCHLOROTHIAZIDE: 12.5MG]/[LOSARTAN POTASSIUM: 50MG])
     Route: 048
  11. METFORMIN [Concomitant]
     Active Substance: METFORMIN HYDROCHLORIDE
     Dosage: 1000 MG, UNK
  12. RESTORIL [Concomitant]
     Active Substance: TEMAZEPAM
     Dosage: 15 MG, 1X/DAY (QHS)
     Route: 048
  13. GLUCOSAMIN + CHONDROITIN [Concomitant]
     Dosage: 1 DF, 2X/DAY [CHONDROITIN SULFATE: 100 MG]/[GLUCOSAMINE: 116 MG]
     Route: 048
  14. LOVASTATIN. [Concomitant]
     Active Substance: LOVASTATIN
     Dosage: 20 MG, UNK
  15. LYRICA [Suspect]
     Active Substance: PREGABALIN
     Indication: FEELING COLD
     Dosage: 50 MG, 2X/DAY
  16. ESTRADIOL. [Concomitant]
     Active Substance: ESTRADIOL
     Dosage: 0.5 MG, DAILY
     Route: 048
  17. ASPIRIN 81 [Concomitant]
     Active Substance: ASPIRIN
     Dosage: 81 MG, DAILY
     Route: 048
  18. LASIX [Concomitant]
     Active Substance: FUROSEMIDE
     Dosage: 10 MG, DAILY (20 MG TABLET, 1/2 TABLETS)
     Route: 048
  19. CALCIUM+ D [Concomitant]
     Dosage: 1 DF, DAILY (500 MG [CALCIUM CARBONATE: 1250MG]/[COLECALCIFEROL: 200UNIT])
     Route: 048
  20. LIDOCAINE. [Concomitant]
     Active Substance: LIDOCAINE
     Dosage: UNK, AS NEEDED (5% BID)
     Route: 061
  21. XANAX [Concomitant]
     Active Substance: ALPRAZOLAM
     Dosage: 0.5 MG, 1X/DAY (1 TABLET QHS)
     Route: 048
  22. CELEBREX [Concomitant]
     Active Substance: CELECOXIB
     Dosage: 100 MG, 1X/DAY
  23. HYDROXYZINE HCL [Concomitant]
     Active Substance: HYDROXYZINE HYDROCHLORIDE
     Dosage: 25 MG, DAILY (50MG TABLET, 1/2 TABLET(S))
     Route: 048
  24. ANTIPYRINE + BENZOCAINE [Concomitant]
     Dosage: UNK UNK, AS NEEDED [BENZOCAINE: 5.4%]/[PHENAZONE: 1.4%]
     Route: 001
  25. SPIRONOLACTONE. [Concomitant]
     Active Substance: SPIRONOLACTONE
     Dosage: 25 MG, DAILY
     Route: 048
  26. KLOR-CON [Concomitant]
     Active Substance: POTASSIUM CHLORIDE
     Dosage: 5 DF, DAILY (MEQ)
     Route: 048
  27. VERAPAMIL [Concomitant]
     Active Substance: VERAPAMIL HYDROCHLORIDE
     Dosage: 120 MG, 2X/DAY
     Route: 048
  28. AZELASTINE [Concomitant]
     Active Substance: AZELASTINE
     Dosage: UNK UNK, 2X/DAY (0.15 2 TIMES A DAY)

REACTIONS (1)
  - Product use issue [Recovered/Resolved]
